FAERS Safety Report 6423548-7 (Version None)
Quarter: 2009Q4

REPORT INFORMATION
  Report Type: 
  Country: None (occurrence: None)
  Receive Date: 20091102
  Receipt Date: 20090716
  Transmission Date: 20100525
  Serious: No
  Sender: FDA-Public Use
  Company Number: A0797331A

PATIENT
  Age: 59 Year
  Sex: Female

DRUGS (2)
  1. RYTHMOL SR [Suspect]
     Indication: ATRIAL FIBRILLATION
     Dosage: 325MG TWICE PER DAY
     Route: 048
     Dates: start: 20041201
  2. NO CONCURRENT MEDICATION [Concomitant]

REACTIONS (5)
  - ALOPECIA [None]
  - COGNITIVE DISORDER [None]
  - DIZZINESS [None]
  - DYSGEUSIA [None]
  - WEIGHT INCREASED [None]
